FAERS Safety Report 6285478-3 (Version None)
Quarter: 2009Q3

REPORT INFORMATION
  Report Type: 
  Country: None (occurrence: None)
  Receive Date: 20090716
  Receipt Date: 20080826
  Transmission Date: 20100115
  Serious: Yes (Hospitalization)
  Sender: FDA-Public Use
  Company Number: 2008BI022015

PATIENT
  Age: 52 Year
  Sex: Male
  Weight: 77.5651 kg

DRUGS (3)
  1. AVONEX [Suspect]
     Indication: MULTIPLE SCLEROSIS
  2. BACLOFEN (CON.) [Concomitant]
  3. PROVIGIL (CON.) [Concomitant]

REACTIONS (2)
  - CYSTITIS [None]
  - INFECTION [None]
